FAERS Safety Report 25707633 (Version 1)
Quarter: 2025Q3

REPORT INFORMATION
  Report Type: Report from Study
  Country: US (occurrence: US)
  Receive Date: 20250820
  Receipt Date: 20250820
  Transmission Date: 20251021
  Serious: Yes (Other)
  Sender: CALLIDITAS THERAPEUTICS AB
  Company Number: US-Calliditas-2025CAL01841

PATIENT
  Age: 52 Year
  Sex: Female

DRUGS (30)
  1. TARPEYO [Suspect]
     Active Substance: BUDESONIDE
     Indication: IgA nephropathy
     Dosage: 16MG (4MG CAPSULES) ONCE DAILY
     Route: 048
     Dates: start: 20250325
  2. LOPRESSOR [Concomitant]
     Active Substance: METOPROLOL TARTRATE
  3. POTASSIUM CHLORIDE [Concomitant]
     Active Substance: POTASSIUM CHLORIDE
  4. PREDNISONE [Concomitant]
     Active Substance: PREDNISONE
  5. PROMETHAZINE [Concomitant]
     Active Substance: PROMETHAZINE HYDROCHLORIDE
  6. PROTONIX [Concomitant]
     Active Substance: PANTOPRAZOLE SODIUM
  7. IMITREX [Concomitant]
     Active Substance: SUMATRIPTAN SUCCINATE
  8. ALDACTONE [Concomitant]
     Active Substance: SPIRONOLACTONE
  9. NORVASC [Concomitant]
     Active Substance: AMLODIPINE BESYLATE
  10. BACTRIM DS [Concomitant]
     Active Substance: SULFAMETHOXAZOLE\TRIMETHOPRIM
  11. CELEXA [Concomitant]
     Active Substance: CITALOPRAM HYDROBROMIDE
  12. CELLCEPT [Concomitant]
     Active Substance: MYCOPHENOLATE MOFETIL
  13. CLONIDINE [Concomitant]
     Active Substance: CLONIDINE
  14. FLEXERIL [Concomitant]
     Active Substance: CYCLOBENZAPRINE HYDROCHLORIDE
  15. GABAPENTIN [Concomitant]
     Active Substance: GABAPENTIN
  16. KENALOG [Concomitant]
     Active Substance: TRIAMCINOLONE ACETONIDE
  17. KLONOPIN [Concomitant]
     Active Substance: CLONAZEPAM
  18. TORSEMIDE [Concomitant]
     Active Substance: TORSEMIDE
  19. VALTREX [Concomitant]
     Active Substance: VALACYCLOVIR HYDROCHLORIDE
  20. VICODIN [Concomitant]
     Active Substance: ACETAMINOPHEN\HYDROCODONE BITARTRATE
  21. ZAROXOLYN [Concomitant]
     Active Substance: METOLAZONE
  22. AZITHROMYCIN [Concomitant]
     Active Substance: AZITHROMYCIN
  23. CODEINE [Concomitant]
     Active Substance: CODEINE
  24. CULTURELLE [Concomitant]
     Active Substance: LACTOBACILLUS RHAMNOSUS
  25. GUAIFENESIN [Concomitant]
     Active Substance: GUAIFENESIN
  26. LASIX [Concomitant]
     Active Substance: FUROSEMIDE
  27. OZEMPIC [Concomitant]
     Active Substance: SEMAGLUTIDE
  28. ZOVIRAX [Concomitant]
     Active Substance: ACYCLOVIR
  29. LOSARTAN [Concomitant]
     Active Substance: LOSARTAN
  30. CYTOXAN [Concomitant]
     Active Substance: CYCLOPHOSPHAMIDE

REACTIONS (8)
  - Abdominal distension [Recovering/Resolving]
  - End stage renal disease [Unknown]
  - Dialysis [Unknown]
  - Chemotherapy [Unknown]
  - Vasculitis [Unknown]
  - Arthralgia [Unknown]
  - Glomerular filtration rate increased [Unknown]
  - Blood creatinine increased [Unknown]

NARRATIVE: CASE EVENT DATE: 20250301
